FAERS Safety Report 4443131-2 (Version None)
Quarter: 2004Q3

REPORT INFORMATION
  Report Type: 
  Country: None (occurrence: None)
  Receive Date: 20040901
  Receipt Date: 20040818
  Transmission Date: 20050211
  Serious: Yes (Other)
  Sender: FDA-Public Use
  Company Number: ZANA001323

PATIENT
  Age: 40 Year
  Sex: Male
  Weight: 72 kg

DRUGS (1)
  1. SIRDALUD (TIZANIDINE HYDROCHLORIDE) [Suspect]
     Indication: MUSCLE SPASTICITY
     Dosage: 8 MG DAILY ORAL
     Route: 048
     Dates: start: 20040701, end: 20040705

REACTIONS (1)
  - VISUAL DISTURBANCE [None]
